FAERS Safety Report 4655238-5 (Version None)
Quarter: 2005Q2

REPORT INFORMATION
  Report Type: 
  Country: None (occurrence: None)
  Receive Date: 20050506
  Receipt Date: 20050425
  Transmission Date: 20051028
  Serious: Yes (Other)
  Sender: FDA-Public Use
  Company Number: CH-GLAXOSMITHKLINE-B0379693B

PATIENT

DRUGS (3)
  1. LAMIVUDINE [Suspect]
     Dosage: 300MG PER DAY
     Dates: start: 20050127, end: 20050228
  2. VIRAMUNE [Concomitant]
     Indication: HIV INFECTION
     Dosage: 200MG SEE DOSAGE TEXT
     Dates: start: 20050127, end: 20050228
  3. VIREAD [Concomitant]
     Indication: HIV INFECTION
     Dosage: 136MG PER DAY
     Dates: start: 20050127, end: 20050228

REACTIONS (3)
  - ASCITES [None]
  - DRUG EXPOSURE DURING PREGNANCY [None]
  - FOETAL DISORDER [None]
